FAERS Safety Report 23815494 (Version 1)
Quarter: 2024Q2

REPORT INFORMATION
  Report Type: Report from Study
  Country: ES (occurrence: ES)
  Receive Date: 20240503
  Receipt Date: 20240503
  Transmission Date: 20240716
  Serious: Yes (Hospitalization)
  Sender: FDA-Public Use
  Company Number: ES-TEVA-VS-3191105

PATIENT
  Age: 61 Year
  Sex: Male
  Weight: 78.9 kg

DRUGS (28)
  1. CARBOPLATIN [Suspect]
     Active Substance: CARBOPLATIN
     Indication: Diffuse large B-cell lymphoma stage IV
     Dosage: C1 - ONWARDS (DOSE: 5AUC)
     Route: 042
     Dates: start: 20231107
  2. ONDANSETRON [Concomitant]
     Active Substance: ONDANSETRON
     Dates: start: 20231227
  3. MESNA [Concomitant]
     Active Substance: MESNA
     Dates: start: 20231227, end: 20231228
  4. DEXCHLORPHENIRAMINE [Concomitant]
     Active Substance: DEXCHLORPHENIRAMINE
     Dates: start: 20231226, end: 20231227
  5. DEXCHLORPHENIRAMINE [Concomitant]
     Active Substance: DEXCHLORPHENIRAMINE
     Dates: start: 20231202, end: 20240103
  6. DEXCHLORPHENIRAMINE [Concomitant]
     Active Substance: DEXCHLORPHENIRAMINE
     Dates: start: 20240104, end: 20240104
  7. TRAMADOL [Concomitant]
     Active Substance: TRAMADOL\TRAMADOL HYDROCHLORIDE
     Dates: start: 20230104
  8. FUROSEMIDE [Concomitant]
     Active Substance: FUROSEMIDE
     Dates: start: 20230105, end: 20230115
  9. METAMIZOLE [Concomitant]
     Active Substance: METAMIZOLE
     Dates: start: 20230105, end: 20230115
  10. GLUCOSALINE (GLUCOSE MONOHYDRATE, SODIUM CHLORIDE) [Concomitant]
     Dates: start: 20230105, end: 20230109
  11. CALCIUM [Concomitant]
     Active Substance: CALCIUM
     Dates: start: 20230105, end: 20230115
  12. VITAMIN D [Concomitant]
     Active Substance: VITAMIN D NOS
     Dates: start: 20230105, end: 20230115
  13. MAGNESIUM SULFATE [Concomitant]
     Active Substance: MAGNESIUM SULFATE\MAGNESIUM SULFATE HEPTAHYDRATE
     Dates: start: 20230105, end: 20230115
  14. BEMIPARIN [Concomitant]
     Active Substance: BEMIPARIN
     Dates: start: 20230119
  15. LEVOFLOXACIN [Concomitant]
     Active Substance: LEVOFLOXACIN
     Dates: start: 20230127, end: 20230127
  16. RITUXIMAB [Suspect]
     Active Substance: RITUXIMAB
     Indication: Diffuse large B-cell lymphoma stage IV
     Dosage: C1 - ONWARDS
     Route: 042
     Dates: start: 20231106
  17. ETOPOSIDE [Suspect]
     Active Substance: ETOPOSIDE
     Indication: Diffuse large B-cell lymphoma stage IV
     Dosage: C1 - ONWARDS;
     Route: 042
     Dates: start: 20231106
  18. IFOSFAMIDE [Suspect]
     Active Substance: IFOSFAMIDE
     Indication: Diffuse large B-cell lymphoma stage IV
     Dosage: C1 - ONWARDS
     Route: 042
     Dates: start: 20231107
  19. METOCLOPRAMIDE [Concomitant]
     Active Substance: METOCLOPRAMIDE
     Dates: start: 20240104, end: 20240115
  20. ACETAMINOPHEN [Concomitant]
     Active Substance: ACETAMINOPHEN
     Dates: start: 20240104
  21. ACETAMINOPHEN [Concomitant]
     Active Substance: ACETAMINOPHEN
     Dates: start: 20231226, end: 20231227
  22. DEXAMETHASONE [Concomitant]
     Active Substance: DEXAMETHASONE
     Dates: start: 20231207, end: 20231214
  23. ACYCLOVIR [Concomitant]
     Active Substance: ACYCLOVIR
     Dates: start: 20231106
  24. SILODOSIN [Concomitant]
     Active Substance: SILODOSIN
     Dates: start: 202101
  25. ACETYLCYSTEINE [Concomitant]
     Active Substance: ACETYLCYSTEINE
     Dates: start: 20231102
  26. CHOLECALCIFEROL [Concomitant]
     Active Substance: CHOLECALCIFEROL
     Dates: start: 20231202, end: 20240103
  27. MELATONIN [Concomitant]
     Active Substance: MELATONIN
     Dates: start: 20231202
  28. ALBUTEROL SULFATE [Concomitant]
     Active Substance: ALBUTEROL SULFATE
     Dates: start: 20231227, end: 20240103

REACTIONS (1)
  - Pneumonia [Recovered/Resolved]

NARRATIVE: CASE EVENT DATE: 20240104
